FAERS Safety Report 4742108-7 (Version None)
Quarter: 2005Q3

REPORT INFORMATION
  Report Type: 
  Country: None (occurrence: None)
  Receive Date: 20050808
  Receipt Date: 20050805
  Transmission Date: 20060218
  Serious: Yes (Other)
  Sender: FDA-Public Use
  Company Number: B0383235A

PATIENT
  Sex: Male

DRUGS (1)
  1. LAMIVUDINE [Suspect]
     Dosage: 100 MG / THREE TIMES PER DAY / ORAL
     Route: 048

REACTIONS (5)
  - APATHY [None]
  - HALLUCINATION [None]
  - MENTAL DISORDER [None]
  - SPEECH DISORDER [None]
  - VISUAL ACUITY REDUCED [None]
